FAERS Safety Report 23722092 (Version 1)
Quarter: 2024Q2

REPORT INFORMATION
  Report Type: Report from Study
  Country: US (occurrence: US)
  Receive Date: 20240409
  Receipt Date: 20240409
  Transmission Date: 20240716
  Serious: Yes (Other)
  Sender: FDA-Public Use
  Company Number: US-ABBVIE-5708483

PATIENT
  Sex: Male

DRUGS (1)
  1. IMBRUVICA [Suspect]
     Active Substance: IBRUTINIB
     Indication: Chronic lymphocytic leukaemia
     Route: 048
     Dates: start: 20221105

REACTIONS (5)
  - Spinal disorder [Unknown]
  - Muscle spasms [Unknown]
  - Aortic valve calcification [Unknown]
  - Dental caries [Unknown]
  - Insomnia [Unknown]
